FAERS Safety Report 16872631 (Version 5)
Quarter: 2025Q1

REPORT INFORMATION
  Report Type: Spontaneous
  Country: JP (occurrence: JP)
  Receive Date: 20191001
  Receipt Date: 20250331
  Transmission Date: 20250408
  Serious: Yes (Life-Threatening, Other)
  Sender: AUROBINDO
  Company Number: JP-AUROBINDO-AUR-APL-2019-063759

PATIENT
  Age: 78 Year
  Sex: Male

DRUGS (4)
  1. PRALATREXATE [Suspect]
     Active Substance: PRALATREXATE
     Indication: Peripheral T-cell lymphoma unspecified
     Route: 042
  2. FORODESINE HYDROCHLORIDE [Suspect]
     Active Substance: FORODESINE HYDROCHLORIDE
     Indication: Peripheral T-cell lymphoma unspecified
     Route: 048
  3. ROMIDEPSIN [Concomitant]
     Active Substance: ROMIDEPSIN
     Indication: Peripheral T-cell lymphoma unspecified
     Route: 065
  4. ROMIDEPSIN [Concomitant]
     Active Substance: ROMIDEPSIN
     Route: 065

REACTIONS (2)
  - Neutrophil count decreased [Unknown]
  - Malignant neoplasm progression [Unknown]
